FAERS Safety Report 4390387-0 (Version None)
Quarter: 2004Q2

REPORT INFORMATION
  Report Type: 
  Country: None (occurrence: None)
  Receive Date: 20040630
  Receipt Date: 20040524
  Transmission Date: 20050107
  Serious: Yes (Life-Threatening, Hospitalization)
  Sender: FDA-Public Use
  Company Number: 2004-DE-01804BY

PATIENT
  Age: 55 Year
  Sex: Female

DRUGS (4)
  1. KINZALMONO    (TELMISARTAN) [Suspect]
     Indication: HYPERTENSION
     Dosage: 40 MG (NR) PO  : 20 MG PO
     Route: 048
     Dates: start: 20040219
  2. KINZALMONO    (TELMISARTAN) [Suspect]
     Indication: HYPERTENSION
     Dosage: 40 MG (NR) PO  : 20 MG PO
     Route: 048
     Dates: start: 20040223
  3. NIFEDIPINE [Concomitant]
  4. BENALAPRIL (ENALAPRIL) [Concomitant]

REACTIONS (3)
  - CEREBROVASCULAR ACCIDENT [None]
  - MENINGITIS [None]
  - SPEECH DISORDER [None]
